FAERS Safety Report 7498691-4 (Version None)
Quarter: 2011Q2

REPORT INFORMATION
  Report Type: 
  Country: None (occurrence: None)
  Receive Date: 20110516
  Receipt Date: 20110503
  Transmission Date: 20111010
  Serious: Yes (Hospitalization)
  Sender: FDA-Public Use
  Company Number: 2011MA004903

PATIENT
  Age: 19 Year
  Sex: Female

DRUGS (1)
  1. INDAPAMIDE [Suspect]
     Indication: NEPHROLITHIASIS
     Dosage: 5 MG;BID

REACTIONS (1)
  - URTICARIA [None]
